FAERS Safety Report 10058515 (Version 1)
Quarter: 2014Q2

REPORT INFORMATION
  Report Type: Spontaneous
  Country: US (occurrence: US)
  Receive Date: 20140404
  Receipt Date: 20140404
  Transmission Date: 20141212
  Serious: Yes (Hospitalization)
  Sender: FDA-Public Use
  Company Number: US-BAYER-2014-049571

PATIENT
  Age: 19 Year
  Sex: Female
  Weight: 90.7 kg

DRUGS (4)
  1. YASMIN [Suspect]
  2. CYMBALTA [Concomitant]
     Dosage: 60 MG DAILY
  3. PROPRANOLOL [Concomitant]
     Dosage: 20 MG, 60 DISPENSED
  4. TRAZODONE [Concomitant]
     Dosage: 50 MG AT BEDTIME
     Route: 048

REACTIONS (1)
  - Vena cava thrombosis [None]
